FAERS Safety Report 6909135-2 (Version None)
Quarter: 2010Q3

REPORT INFORMATION
  Report Type: 
  Country: None (occurrence: None)
  Receive Date: 20100805
  Receipt Date: 20100730
  Transmission Date: 20110219
  Serious: Yes (Death)
  Sender: FDA-Public Use
  Company Number: US-CEPHALON-2010004080

PATIENT
  Age: 47 Year

DRUGS (3)
  1. AMRIX [Suspect]
  2. VERAPAMIL [Suspect]
  3. DULOXETINE HYDROCHLORIDE [Suspect]

REACTIONS (1)
  - COMPLETED SUICIDE [None]
